FAERS Safety Report 17876357 (Version 5)
Quarter: 2020Q3

REPORT INFORMATION
  Report Type: Report from Study
  Country: US (occurrence: US)
  Receive Date: 20200609
  Receipt Date: 20200902
  Transmission Date: 20201103
  Serious: No
  Sender: FDA-Public Use
  Company Number: NVSC2020US159928

PATIENT
  Age: 49 Year
  Sex: Female

DRUGS (2)
  1. COSENTYX [Suspect]
     Active Substance: SECUKINUMAB
     Indication: PSORIASIS
     Dosage: 150 MG/KG, QW
     Route: 058
     Dates: start: 20200529, end: 20200605
  2. COSENTYX [Suspect]
     Active Substance: SECUKINUMAB
     Dosage: 300 MG/KG, QMO (BENEATH THE SKIN,USUALLY VIA INJECTION)
     Route: 058
     Dates: start: 20200504, end: 20200824

REACTIONS (4)
  - Blister [Unknown]
  - Chemical burn [Recovered/Resolved]
  - Psoriasis [Unknown]
  - Rash [Unknown]

NARRATIVE: CASE EVENT DATE: 20200529
